FAERS Safety Report 12642444 (Version 1)
Quarter: 2016Q3

REPORT INFORMATION
  Report Type: Other
  Country: GB (occurrence: GB)
  Receive Date: 20160810
  Receipt Date: 20160810
  Transmission Date: 20161109
  Serious: Yes (Other)
  Sender: FDA-Public Use
  Company Number: GB-PFM-GB-2016-2428

PATIENT
  Age: 20 Year
  Sex: Female
  Weight: 58 kg

DRUGS (2)
  1. PROPRANOLOL INN [Suspect]
     Active Substance: PROPRANOLOL HYDROCHLORIDE
     Indication: ANXIETY
     Dosage: 40 MG, UNK
     Route: 048
     Dates: start: 20150901, end: 20160721
  2. ORTHO EVRA [Concomitant]
     Active Substance: ETHINYL ESTRADIOL\NORELGESTROMIN
     Indication: PRODUCT USED FOR UNKNOWN INDICATION
     Route: 065

REACTIONS (4)
  - Depression [Recovered/Resolved]
  - Product use issue [Recovered/Resolved]
  - Drug administered to patient of inappropriate age [Recovered/Resolved]
  - Off label use [Recovered/Resolved]

NARRATIVE: CASE EVENT DATE: 20150901
